FAERS Safety Report 10250652 (Version 1)
Quarter: 2014Q2

REPORT INFORMATION
  Report Type: Spontaneous
  Country: JP (occurrence: JP)
  Receive Date: 20140620
  Receipt Date: 20140620
  Transmission Date: 20141212
  Serious: Yes (Other)
  Sender: FDA-Public Use
  Company Number: JP-GLAXOSMITHKLINE-B1004653A

PATIENT
  Age: 69 Year
  Sex: Female

DRUGS (1)
  1. NOGITECAN HYDROCHLORIDE [Suspect]
     Indication: SMALL CELL LUNG CANCER
     Dosage: 1MGM2 PER DAY
     Route: 065
     Dates: start: 20130805, end: 20130809

REACTIONS (6)
  - Neutropenia [Recovered/Resolved]
  - Fatigue [Recovered/Resolved]
  - Vasculitis [Recovered/Resolved]
  - Stomatitis [Recovered/Resolved]
  - Neck pain [Recovered/Resolved]
  - Rash [Recovered/Resolved]
